FAERS Safety Report 25634807 (Version 1)
Quarter: 2025Q3

REPORT INFORMATION
  Report Type: Spontaneous
  Country: GB (occurrence: GB)
  Receive Date: 20250801
  Receipt Date: 20250801
  Transmission Date: 20251020
  Serious: Yes (Hospitalization)
  Sender: MYLAN
  Company Number: GB-MYLANLABS-2025M1064702

PATIENT
  Age: 40 Year
  Sex: Female

DRUGS (16)
  1. TACROLIMUS [Suspect]
     Active Substance: TACROLIMUS
     Indication: Ocular sarcoidosis
  2. TACROLIMUS [Suspect]
     Active Substance: TACROLIMUS
     Route: 048
  3. TACROLIMUS [Suspect]
     Active Substance: TACROLIMUS
     Route: 048
  4. TACROLIMUS [Suspect]
     Active Substance: TACROLIMUS
  5. PREDNISOLONE [Suspect]
     Active Substance: PREDNISOLONE
     Indication: Ocular sarcoidosis
  6. PREDNISOLONE [Suspect]
     Active Substance: PREDNISOLONE
  7. PREDNISOLONE [Suspect]
     Active Substance: PREDNISOLONE
     Route: 048
  8. PREDNISOLONE [Suspect]
     Active Substance: PREDNISOLONE
     Route: 048
  9. PREDNISOLONE [Suspect]
     Active Substance: PREDNISOLONE
  10. PREDNISOLONE [Suspect]
     Active Substance: PREDNISOLONE
  11. PREDNISOLONE [Suspect]
     Active Substance: PREDNISOLONE
     Route: 048
  12. PREDNISOLONE [Suspect]
     Active Substance: PREDNISOLONE
     Route: 048
  13. PREDNISOLONE [Suspect]
     Active Substance: PREDNISOLONE
     Dosage: 20 MILLIGRAM, QD
     Dates: start: 201705
  14. PREDNISOLONE [Suspect]
     Active Substance: PREDNISOLONE
     Dosage: 20 MILLIGRAM, QD
     Route: 048
     Dates: start: 201705
  15. PREDNISOLONE [Suspect]
     Active Substance: PREDNISOLONE
     Dosage: 20 MILLIGRAM, QD
     Dates: start: 201705
  16. PREDNISOLONE [Suspect]
     Active Substance: PREDNISOLONE
     Dosage: 20 MILLIGRAM, QD
     Route: 048
     Dates: start: 201705

REACTIONS (5)
  - Mycobacterium tuberculosis complex test positive [Recovered/Resolved]
  - Abscess [Recovered/Resolved]
  - Abscess limb [Recovered/Resolved]
  - Pelvic abscess [Recovered/Resolved]
  - Off label use [Unknown]
